FAERS Safety Report 9463688 (Version 4)
Quarter: 2013Q4

REPORT INFORMATION
  Report Type: Spontaneous
  Country: GB (occurrence: GB)
  Receive Date: 20130819
  Receipt Date: 20131118
  Transmission Date: 20140711
  Serious: Yes (Hospitalization, Other)
  Sender: FDA-Public Use
  Company Number: PHFR2012GB005377

PATIENT
  Age: 49 Year
  Sex: Male

DRUGS (12)
  1. CLOZARIL [Suspect]
     Indication: SCHIZOPHRENIA
     Dosage: 650 MG, ONCE DAILY
     Route: 048
     Dates: start: 20060616
  2. CLOZARIL [Suspect]
     Dosage: 675 MG, QD
     Route: 048
  3. CLOZARIL [Suspect]
     Dosage: 625 MG,
     Route: 048
  4. CLOZARIL [Suspect]
     Dosage: 450 MG, OD
     Route: 048
  5. CLOZARIL [Suspect]
     Dosage: 625 MG,
  6. HYOSCINE HYDROBROMIDE [Concomitant]
     Indication: SALIVARY HYPERSECRETION
     Dosage: 300 UG, UNK
     Route: 048
  7. HYOSCINE HYDROBROMIDE [Concomitant]
     Dosage: 600 MG, (FEW YEARS)
  8. CLONAZEPAM [Concomitant]
     Indication: EPILEPSY
     Dosage: 3 MG, MANY YEARS
     Route: 048
  9. OMEPRAZOLE [Concomitant]
     Dosage: 20 MG, UNK
     Route: 048
  10. LACTULOSE [Concomitant]
     Dosage: 10 ML, UNK
     Route: 048
  11. SENNA [Concomitant]
     Dosage: 3 DF, UNK
     Route: 048
     Dates: start: 20121010
  12. SIMVASTATIN [Concomitant]
     Dosage: 40 MG, UNK
     Route: 048

REACTIONS (4)
  - Panic attack [Recovered/Resolved]
  - Epilepsy [Recovered/Resolved]
  - Antipsychotic drug level increased [Recovering/Resolving]
  - Constipation [Recovering/Resolving]
